FAERS Safety Report 8544448-2 (Version None)
Quarter: 2012Q3

REPORT INFORMATION
  Report Type: 
  Country: None (occurrence: None)
  Receive Date: 20120719
  Receipt Date: 20120719
  Transmission Date: 20120928
  Serious: Yes (Other)
  Sender: FDA-Public Use
  Company Number: None

PATIENT
  Sex: Male

DRUGS (5)
  1. BITROAN [Concomitant]
  2. XANAX [Concomitant]
  3. PRAVASTATIN 30 MG [Concomitant]
  4. CLINDAMYCIN [Suspect]
     Indication: POST PROCEDURAL INFECTION
     Dosage: 300 MG THREE A DAY PO
     Route: 048
     Dates: start: 20120710, end: 20120718
  5. BENTYL [Concomitant]

REACTIONS (5)
  - URINE OUTPUT DECREASED [None]
  - HAEMATOCHEZIA [None]
  - DYSPHAGIA [None]
  - CHEST DISCOMFORT [None]
  - DYSPNOEA [None]
